FAERS Safety Report 7767260-0 (Version None)
Quarter: 2011Q3

REPORT INFORMATION
  Report Type: 
  Country: None (occurrence: None)
  Receive Date: 20110922
  Receipt Date: 20100917
  Transmission Date: 20111222
  Serious: No
  Sender: FDA-Public Use
  Company Number: US-ASTRAZENECA-2010SE43829

PATIENT
  Age: 46 Year
  Sex: Female

DRUGS (2)
  1. SEROQUEL [Suspect]
     Dosage: 25-50 MG
     Route: 048
  2. METHADONE HCL [Concomitant]

REACTIONS (2)
  - PALPITATIONS [None]
  - FEELING JITTERY [None]
